FAERS Safety Report 6029582-3 (Version None)
Quarter: 2009Q1

REPORT INFORMATION
  Report Type: 
  Country: None (occurrence: None)
  Receive Date: 20090107
  Receipt Date: 20081226
  Transmission Date: 20090719
  Serious: Yes (Hospitalization)
  Sender: FDA-Public Use
  Company Number: FR-ELI_LILLY_AND_COMPANY-FR200811005074

PATIENT
  Age: 44 Year
  Sex: Male
  Weight: 61 kg

DRUGS (8)
  1. HUMALOG [Suspect]
     Indication: TYPE 1 DIABETES MELLITUS
     Dosage: 3 IU EACH MORNING, 14 IU AT NOON, 14 IU EACH EVENING
     Route: 058
     Dates: start: 20030101
  2. HUMALOG [Suspect]
     Dosage: 5 IU EACH MORNING, 8 IU AT NOON, 10 IU EACH EVENING
     Route: 058
     Dates: start: 20080101
  3. LANTUS [Concomitant]
     Indication: TYPE 1 DIABETES MELLITUS
     Dosage: 20 IU, EACH EVENING
     Route: 058
     Dates: start: 20030101
  4. SIMVASTATIN [Concomitant]
     Dosage: 10 MG, DAILY (1/D)
     Route: 048
  5. APROVEL [Concomitant]
     Dosage: 150 MG, DAILY (1/D)
     Route: 048
  6. AMLOPIN [Concomitant]
     Dosage: 5 MG, DAILY (1/D)
     Route: 048
  7. RAMIPRIL [Concomitant]
     Dosage: 10 MG, DAILY (1/D)
     Route: 048
  8. KARDEGIC /00002703/ [Concomitant]
     Dosage: 75 MG, DAILY (1/D)
     Route: 048

REACTIONS (3)
  - HYPOGLYCAEMIA [None]
  - LOSS OF CONSCIOUSNESS [None]
  - ROAD TRAFFIC ACCIDENT [None]
